FAERS Safety Report 9077595 (Version 1)
Quarter: 2013Q1

REPORT INFORMATION
  Report Type: Spontaneous
  Country: PR (occurrence: PR)
  Receive Date: 20130130
  Receipt Date: 20130130
  Transmission Date: 20140127
  Serious: No
  Sender: FDA-Public Use
  Company Number: PR-ABBOTT-12P-131-0975811-00

PATIENT
  Sex: Female
  Weight: 86.26 kg

DRUGS (5)
  1. HUMIRA [Suspect]
     Indication: PSORIASIS
     Route: 058
  2. HUMIRA [Suspect]
     Route: 058
     Dates: start: 201208, end: 20120829
  3. ENALAPRIL [Suspect]
     Indication: HYPERTENSION
     Route: 048
  4. CLOBETASOL [Concomitant]
     Indication: PSORIASIS
     Route: 061
  5. UNKNOWN MEDICATION [Concomitant]
     Indication: HYPERCHOLESTEROLAEMIA
     Route: 048

REACTIONS (1)
  - Blister [Recovering/Resolving]
